FAERS Safety Report 20799719 (Version 2)
Quarter: 2022Q2

REPORT INFORMATION
  Report Type: Spontaneous
  Country: US (occurrence: None)
  Receive Date: 20220509
  Receipt Date: 20220621
  Transmission Date: 20220720
  Serious: No
  Sender: FDA-Public Use
  Company Number: 2022A166531

PATIENT
  Age: 20198 Day
  Sex: Female
  Weight: 113.9 kg

DRUGS (1)
  1. BYDUREON BCISE [Suspect]
     Active Substance: EXENATIDE
     Indication: Type 2 diabetes mellitus
     Route: 058
     Dates: start: 2021

REACTIONS (5)
  - COVID-19 [Not Recovered/Not Resolved]
  - Device use issue [Unknown]
  - Intentional device misuse [Unknown]
  - Product administered at inappropriate site [Unknown]
  - Drug delivery system malfunction [Unknown]

NARRATIVE: CASE EVENT DATE: 20220423
